FAERS Safety Report 12154340 (Version 2)
Quarter: 2019Q3

REPORT INFORMATION
  Report Type: Spontaneous
  Country: US (occurrence: US)
  Receive Date: 20160307
  Receipt Date: 20190905
  Transmission Date: 20191004
  Serious: No
  Sender: FDA-Public Use
  Company Number: US-VERTEX PHARMACEUTICALS-2016-001340

PATIENT
  Sex: Female

DRUGS (1)
  1. ORKAMBI [Suspect]
     Active Substance: IVACAFTOR\LUMACAFTOR
     Indication: CYSTIC FIBROSIS
     Route: 048

REACTIONS (6)
  - Ovarian cyst [Unknown]
  - Blood aldosterone abnormal [Unknown]
  - Blood testosterone increased [Unknown]
  - Alopecia [Unknown]
  - Renin abnormal [Unknown]
  - Blood pressure abnormal [Unknown]
